FAERS Safety Report 9391537 (Version 2)
Quarter: 2013Q3

REPORT INFORMATION
  Report Type: Spontaneous
  Country: DE (occurrence: DE)
  Receive Date: 20130709
  Receipt Date: 20130806
  Transmission Date: 20140515
  Serious: Yes (Hospitalization)
  Sender: FDA-Public Use
  Company Number: DE-JNJFOC-20110903411

PATIENT
  Sex: Male

DRUGS (2)
  1. HALDOL DECANOATE [Suspect]
     Indication: SUICIDAL IDEATION
     Route: 042
  2. HALDOL DECANOATE [Suspect]
     Indication: ACUTE PSYCHOSIS
     Route: 042

REACTIONS (2)
  - Incorrect route of drug administration [Recovered/Resolved]
  - Somnolence [Recovered/Resolved]
